FAERS Safety Report 18763262 (Version 1)
Quarter: 2021Q1

REPORT INFORMATION
  Report Type: Spontaneous
  Country: US (occurrence: US)
  Receive Date: 20210120
  Receipt Date: 20210120
  Transmission Date: 20210419
  Serious: Yes (Other)
  Sender: FDA-Public Use
  Company Number: None

PATIENT
  Age: 63 Year
  Sex: Female
  Weight: 77.1 kg

DRUGS (6)
  1. BAMLANIVIMAB. [Suspect]
     Active Substance: BAMLANIVIMAB
     Indication: CORONAVIRUS TEST POSITIVE
     Dosage: ?          OTHER FREQUENCY:ONCE;?
     Route: 041
     Dates: start: 20210106, end: 20210106
  2. SYNTHROID 175 MCG PO DAILY [Concomitant]
  3. MACROBID 100MG PO BID X 5 DAYS [Concomitant]
     Dates: start: 20210104, end: 20210109
  4. HYDROCHLOROTHIAZIDE 12.5 MG PO DAILY [Concomitant]
  5. LOSARTAN 100 MG PO DAILY [Concomitant]
  6. MEDROXYPROGESTERONE 2.5 MG PO DAILY [Concomitant]

REACTIONS (3)
  - Dizziness [None]
  - Body temperature increased [None]
  - Nausea [None]

NARRATIVE: CASE EVENT DATE: 20210106
